FAERS Safety Report 7063050-5 (Version None)
Quarter: 2010Q4

REPORT INFORMATION
  Report Type: 
  Country: None (occurrence: None)
  Receive Date: 20101026
  Receipt Date: 20100412
  Transmission Date: 20110411
  Serious: Yes (Other)
  Sender: FDA-Public Use
  Company Number: US-PFIZER INC-2010046514

PATIENT
  Age: 64 Year
  Sex: Male

DRUGS (7)
  1. LIPITOR [Suspect]
     Dosage: 10 MG, UNK
  2. SPIRIVA [Suspect]
  3. FUROSEMIDE [Suspect]
     Dosage: 40 MG, UNK
  4. ADVAIR DISKUS 100/50 [Suspect]
     Dosage: 500/50
  5. BENAZEPRIL [Suspect]
     Dosage: 40 MG, UNK
  6. TOPROL-XL [Suspect]
     Dosage: 25 MG, UNK
  7. PROAIR HFA [Suspect]

REACTIONS (1)
  - MYALGIA [None]
